FAERS Safety Report 25685884 (Version 2)
Quarter: 2025Q4

REPORT INFORMATION
  Report Type: Spontaneous
  Country: US (occurrence: US)
  Receive Date: 20250815
  Receipt Date: 20251020
  Transmission Date: 20260117
  Serious: Yes (Other)
  Sender: GLAXOSMITHKLINE
  Company Number: US-GSK-US2025GSK104100

PATIENT
  Age: 62 Year
  Sex: Female

DRUGS (1)
  1. WELLBUTRIN XL [Suspect]
     Active Substance: BUPROPION HYDROCHLORIDE
     Indication: Major depression
     Dosage: 150 MG, TID
     Route: 065

REACTIONS (5)
  - Adverse event [Unknown]
  - Feeling abnormal [Unknown]
  - Counterfeit product administered [Unknown]
  - Product counterfeit [Unknown]
  - Product colour issue [Unknown]
